FAERS Safety Report 15986416 (Version 4)
Quarter: 2019Q2

REPORT INFORMATION
  Report Type: Spontaneous
  Country: CA (occurrence: CA)
  Receive Date: 20190220
  Receipt Date: 20190520
  Transmission Date: 20190711
  Serious: Yes (Hospitalization)
  Sender: FDA-Public Use
  Company Number: CA-PFIZER INC-2019066578

PATIENT
  Age: 65 Year
  Sex: Female

DRUGS (4)
  1. PREDNISONE. [Concomitant]
     Active Substance: PREDNISONE
     Dosage: 25 MG, 1X/DAY
     Route: 065
  2. METHOTREXATE. [Concomitant]
     Active Substance: METHOTREXATE
     Indication: RHEUMATOID ARTHRITIS
     Dosage: 15 MG, WEEKLY(3 PILLS THURSDAY AND 3 PILLS FRIDAY)
     Route: 048
  3. XELJANZ [Suspect]
     Active Substance: TOFACITINIB CITRATE
     Dosage: 5 MG, 2X/DAY
     Route: 048
     Dates: start: 20190214, end: 201905
  4. XELJANZ [Suspect]
     Active Substance: TOFACITINIB CITRATE
     Indication: RHEUMATOID ARTHRITIS
     Dosage: UNK
     Route: 048

REACTIONS (8)
  - Musculoskeletal stiffness [Unknown]
  - Presyncope [Not Recovered/Not Resolved]
  - Eczema [Recovering/Resolving]
  - Skin burning sensation [Recovered/Resolved]
  - Pain [Unknown]
  - Rash [Unknown]
  - Condition aggravated [Not Recovered/Not Resolved]
  - Abdominal pain upper [Recovered/Resolved]
